FAERS Safety Report 7810319-X (Version None)
Quarter: 2011Q4

REPORT INFORMATION
  Report Type: 
  Country: None (occurrence: None)
  Receive Date: 20111012
  Receipt Date: 20110921
  Transmission Date: 20120403
  Serious: Yes (Hospitalization)
  Sender: FDA-Public Use
  Company Number: US-GILEAD-2011-0044287

PATIENT

DRUGS (2)
  1. ADCIRCA [Concomitant]
  2. LETAIRIS [Suspect]
     Indication: PRODUCT USED FOR UNKNOWN INDICATION
     Route: 048
     Dates: start: 20091117

REACTIONS (4)
  - UPPER RESPIRATORY TRACT INFECTION [None]
  - DYSPNOEA [None]
  - SICKLE CELL ANAEMIA WITH CRISIS [None]
  - ASCITES [None]
